FAERS Safety Report 8185509 (Version 6)
Quarter: 2016Q2

REPORT INFORMATION
  Report Type: Spontaneous
  Country: US (occurrence: US)
  Receive Date: 20111018
  Receipt Date: 20160414
  Transmission Date: 20160815
  Serious: Yes (Hospitalization, Other)
  Sender: FDA-Public Use
  Company Number: US-ASTRAZENECA-2011SE36649

PATIENT
  Age: 59 Year
  Sex: Male
  Weight: 76.7 kg

DRUGS (13)
  1. SYMBICORT [Suspect]
     Active Substance: BUDESONIDE\FORMOTEROL FUMARATE DIHYDRATE
     Indication: ASTHMA
     Dosage: 160/4.5, TWO PUFFS TWICE A DAY
     Route: 055
     Dates: end: 201311
  2. SYMBICORT [Suspect]
     Active Substance: BUDESONIDE\FORMOTEROL FUMARATE DIHYDRATE
     Indication: ASTHMA
     Dosage: 160/4.5 TWICE A DAY
     Route: 055
  3. PROAIR HFA [Concomitant]
     Active Substance: ALBUTEROL SULFATE
  4. SYMBICORT [Suspect]
     Active Substance: BUDESONIDE\FORMOTEROL FUMARATE DIHYDRATE
     Indication: ASTHMA PROPHYLAXIS
     Dosage: 160/4.5, TWO PUFFS TWICE A DAY
     Route: 055
     Dates: end: 201311
  5. SYMBICORT [Suspect]
     Active Substance: BUDESONIDE\FORMOTEROL FUMARATE DIHYDRATE
     Indication: ASTHMA
     Dosage: 160/4.5, TWO PUFFS TWICE A DAY
     Route: 055
     Dates: end: 20140305
  6. SYMBICORT [Suspect]
     Active Substance: BUDESONIDE\FORMOTEROL FUMARATE DIHYDRATE
     Indication: ASTHMA
     Dosage: 160/4.5 EITHER THREE TIMES DAILY, ONCE DAILY OR WITHOUT TAKING ANY AT ALL, UNKNOWN FREQUENCY
     Route: 055
     Dates: start: 201404
  7. SYMBICORT [Suspect]
     Active Substance: BUDESONIDE\FORMOTEROL FUMARATE DIHYDRATE
     Indication: ASTHMA PROPHYLAXIS
     Dosage: 160/4.5 TWICE A DAY
     Route: 055
  8. DIABETES PILLS [Concomitant]
     Indication: DIABETES MELLITUS
  9. SYMBICORT [Suspect]
     Active Substance: BUDESONIDE\FORMOTEROL FUMARATE DIHYDRATE
     Indication: ASTHMA PROPHYLAXIS
     Dosage: 160/4.5, TWO PUFFS TWICE A DAY
     Route: 055
     Dates: end: 20140305
  10. SYMBICORT [Suspect]
     Active Substance: BUDESONIDE\FORMOTEROL FUMARATE DIHYDRATE
     Indication: ASTHMA PROPHYLAXIS
     Dosage: 160/4.5 EITHER THREE TIMES DAILY, ONCE DAILY OR WITHOUT TAKING ANY AT ALL, UNKNOWN FREQUENCY
     Route: 055
     Dates: start: 201404
  11. VENTOLIN [Concomitant]
     Active Substance: ALBUTEROL SULFATE
  12. BESYLATE [Concomitant]
     Indication: HYPERTENSION
     Route: 048
  13. DULERA [Concomitant]
     Active Substance: FORMOTEROL FUMARATE DIHYDRATE\MOMETASONE FUROATE

REACTIONS (11)
  - Fall [Unknown]
  - Drug dose omission [Not Recovered/Not Resolved]
  - Rotator cuff syndrome [Unknown]
  - Glucose tolerance impaired [Unknown]
  - Nasopharyngitis [Unknown]
  - Seasonal allergy [Unknown]
  - Intentional product misuse [Unknown]
  - Asthma [Recovered/Resolved]
  - Head injury [Unknown]
  - Joint injury [Not Recovered/Not Resolved]
  - Intentional product use issue [Not Recovered/Not Resolved]

NARRATIVE: CASE EVENT DATE: 2010
